FAERS Safety Report 18998712 (Version 1)
Quarter: 2021Q1

REPORT INFORMATION
  Report Type: Spontaneous
  Country: GB (occurrence: GB)
  Receive Date: 20210311
  Receipt Date: 20210311
  Transmission Date: 20210420
  Serious: Yes (Hospitalization)
  Sender: FDA-Public Use
  Company Number: GB-TEVA-2021-GB-1886764

PATIENT
  Age: 70 Year
  Sex: Male

DRUGS (1)
  1. LEVOTHYROXINE. [Suspect]
     Active Substance: LEVOTHYROXINE
     Indication: HYPOTHYROIDISM
     Dosage: 150 MICROGRAM DAILY; STRENGTH?50MCG AND 100MCG, ONCE A DAY, FROM 15 YEARS AGO;
     Route: 065

REACTIONS (1)
  - Psychotic disorder [Recovering/Resolving]
